FAERS Safety Report 24987610 (Version 2)
Quarter: 2025Q1

REPORT INFORMATION
  Report Type: Spontaneous
  Country: BR (occurrence: BR)
  Receive Date: 20250219
  Receipt Date: 20250227
  Transmission Date: 20250409
  Serious: Yes (Other)
  Sender: MERCK SHARP & DOHME LLC
  Company Number: BR-009507513-2254679

PATIENT
  Age: 42 Year
  Sex: Female

DRUGS (1)
  1. PEMBROLIZUMAB [Suspect]
     Active Substance: PEMBROLIZUMAB
     Indication: Invasive ductal breast carcinoma
     Dates: start: 202403

REACTIONS (3)
  - Immune-mediated endocrinopathy [Unknown]
  - Somnolence [Unknown]
  - Blood corticotrophin increased [Unknown]

NARRATIVE: CASE EVENT DATE: 20240101
